FAERS Safety Report 8667680 (Version 4)
Quarter: 2013Q1

REPORT INFORMATION
  Report Type: Report from Study
  Country: US (occurrence: US)
  Receive Date: 20120717
  Receipt Date: 20130215
  Transmission Date: 20140127
  Serious: Yes (Death, Life-Threatening, Hospitalization, Other)
  Sender: FDA-Public Use
  Company Number: US-MPIJNJ-2012-04057

PATIENT
  Age: 10 Year
  Sex: Male
  Weight: 31.8 kg

DRUGS (6)
  1. VELCADE [Suspect]
     Indication: ACUTE MYELOID LEUKAEMIA
     Dosage: 1.3 MG/M2, CYCLIC
     Dates: start: 20120601, end: 20120601
  2. CYTARABINE [Suspect]
     Indication: ACUTE MYELOID LEUKAEMIA
     Dosage: 100 MG/KG, UNK
     Route: 037
     Dates: start: 20120601, end: 20120611
  3. ETOPOSIDE [Suspect]
     Indication: ACUTE MYELOID LEUKAEMIA
     Dosage: 100 MG/M2, CYCLIC
     Route: 042
     Dates: start: 20120601, end: 20120605
  4. DAUNORUBICIN HYDROCHLORIDE [Suspect]
     Indication: ACUTE MYELOID LEUKAEMIA
     Dosage: 50 MG/M2, CYCLIC
     Dates: start: 20120601, end: 20120605
  5. FENTANYL [Suspect]
     Indication: PRODUCT USED FOR UNKNOWN INDICATION
  6. ATIVAN [Suspect]
     Indication: PRODUCT USED FOR UNKNOWN INDICATION

REACTIONS (29)
  - Ventricular fibrillation [Fatal]
  - Multi-organ failure [Not Recovered/Not Resolved]
  - Acidosis [Not Recovered/Not Resolved]
  - Ventricular tachycardia [Not Recovered/Not Resolved]
  - Activated partial thromboplastin time prolonged [Not Recovered/Not Resolved]
  - Acidosis [Recovering/Resolving]
  - Embolism [Not Recovered/Not Resolved]
  - Atelectasis [Not Recovered/Not Resolved]
  - Mediastinal haemorrhage [Not Recovered/Not Resolved]
  - Angina pectoris [Not Recovered/Not Resolved]
  - Respiratory failure [Not Recovered/Not Resolved]
  - Respiratory failure [Recovering/Resolving]
  - Sinus tachycardia [Not Recovered/Not Resolved]
  - Dyspnoea [Recovering/Resolving]
  - Renal failure acute [Recovering/Resolving]
  - Hypotension [Not Recovered/Not Resolved]
  - Aspartate aminotransferase increased [Not Recovered/Not Resolved]
  - Ejection fraction decreased [Not Recovered/Not Resolved]
  - Abdominal pain [Not Recovered/Not Resolved]
  - Cardiac failure [Not Recovered/Not Resolved]
  - Left ventricular dysfunction [Not Recovered/Not Resolved]
  - Pericardial effusion [Not Recovered/Not Resolved]
  - Dyspnoea [Not Recovered/Not Resolved]
  - Pulmonary oedema [Not Recovered/Not Resolved]
  - Hypercalcaemia [Not Recovered/Not Resolved]
  - Hypoalbuminaemia [Not Recovered/Not Resolved]
  - Alanine aminotransferase increased [Not Recovered/Not Resolved]
  - Blood creatinine increased [Not Recovered/Not Resolved]
  - Disseminated intravascular coagulation [Not Recovered/Not Resolved]
